FAERS Safety Report 5652977-4 (Version None)
Quarter: 2008Q1

REPORT INFORMATION
  Report Type: 
  Country: None (occurrence: None)
  Receive Date: 20080306
  Receipt Date: 20080225
  Transmission Date: 20080703
  Serious: Yes (Other)
  Sender: FDA-Public Use
  Company Number: PHEH2008US02365

PATIENT
  Sex: Female

DRUGS (1)
  1. CYCLOSPORINE [Suspect]
     Indication: ANAEMIA
     Route: 048

REACTIONS (5)
  - HEPATIC CIRRHOSIS [None]
  - HEPATIC STEATOSIS [None]
  - IRON OVERLOAD [None]
  - LIVER FUNCTION TEST ABNORMAL [None]
  - SERUM FERRITIN INCREASED [None]
